FAERS Safety Report 21960224 (Version 1)
Quarter: 2023Q1

REPORT INFORMATION
  Report Type: Spontaneous
  Country: FR (occurrence: FR)
  Receive Date: 20230207
  Receipt Date: 20230207
  Transmission Date: 20230418
  Serious: Yes (Hospitalization)
  Sender: FDA-Public Use
  Company Number: None

PATIENT
  Age: 21 Year
  Sex: Female

DRUGS (2)
  1. VOTRIENT [Suspect]
     Active Substance: PAZOPANIB HYDROCHLORIDE
     Indication: Rhabdomyosarcoma
     Dosage: 800 MG, QD
     Route: 065
     Dates: start: 20170530
  2. OPDIVO [Suspect]
     Active Substance: NIVOLUMAB
     Indication: Rhabdomyosarcoma
     Dosage: 130 MG
     Route: 042
     Dates: start: 20171214, end: 20190613

REACTIONS (1)
  - Vitiligo [Recovered/Resolved with Sequelae]

NARRATIVE: CASE EVENT DATE: 20190124
